FAERS Safety Report 8919384 (Version 1)
Quarter: 2012Q4

REPORT INFORMATION
  Report Type: 
  Country: US (occurrence: US)
  Receive Date: 20121121
  Receipt Date: 20121121
  Transmission Date: 20130627
  Serious: No
  Sender: FDA-Public Use
  Company Number: US-PFIZER INC-2012286913

PATIENT
  Age: 53 Year
  Sex: Male
  Weight: 126 kg

DRUGS (2)
  1. VIAGRA [Suspect]
     Indication: SEXUAL DYSFUNCTION
     Dosage: 100 mg, as needed
     Dates: start: 2002
  2. LANTUS [Concomitant]
     Indication: DIABETES
     Dosage: 40 mg, daily

REACTIONS (3)
  - Irritability [Unknown]
  - Mental disorder [Unknown]
  - Emotional disorder [Unknown]
